FAERS Safety Report 6470585-2 (Version None)
Quarter: 2009Q4

REPORT INFORMATION
  Report Type: 
  Country: None (occurrence: None)
  Receive Date: 20091203
  Receipt Date: 20091109
  Transmission Date: 20100525
  Serious: No
  Sender: FDA-Public Use
  Company Number: US-ABBOTT-09P-163-0608181-00

PATIENT
  Sex: Female
  Weight: 65.83 kg

DRUGS (2)
  1. MERIDIA [Suspect]
     Indication: WEIGHT CONTROL
     Dates: start: 20090801
  2. MERIDIA [Suspect]

REACTIONS (2)
  - DRUG EFFECT DECREASED [None]
  - LACK OF SATIETY [None]
